FAERS Safety Report 13043415 (Version 2)
Quarter: 2017Q1

REPORT INFORMATION
  Report Type: Report from Study
  Country: None (occurrence: US)
  Receive Date: 20161220
  Receipt Date: 20170224
  Transmission Date: 20170428
  Serious: Yes (Other)
  Sender: FDA-Public Use
  Company Number: US-ABBVIE-16K-163-1807986-00

PATIENT
  Age: 61 Year
  Sex: Female

DRUGS (4)
  1. HUMIRA [Suspect]
     Active Substance: ADALIMUMAB
     Dosage: DAY 15
     Route: 058
     Dates: start: 20161102, end: 20161102
  2. HUMIRA [Suspect]
     Active Substance: ADALIMUMAB
     Route: 058
     Dates: start: 20161116
  3. HUMIRA [Suspect]
     Active Substance: ADALIMUMAB
     Dosage: DAY 1
     Route: 058
     Dates: start: 20161019, end: 20161019
  4. HUMIRA [Suspect]
     Active Substance: ADALIMUMAB
     Indication: CROHN^S DISEASE
     Route: 058
     Dates: start: 201605, end: 201606

REACTIONS (10)
  - Large intestinal stenosis [Recovering/Resolving]
  - Rectal discharge [Unknown]
  - Diarrhoea [Not Recovered/Not Resolved]
  - Weight decreased [Unknown]
  - Insomnia [Not Recovered/Not Resolved]
  - Large intestinal obstruction [Recovering/Resolving]
  - Vaginal discharge [Unknown]
  - Fatigue [Recovered/Resolved]
  - Pyrexia [Not Recovered/Not Resolved]
  - Vaginal inflammation [Unknown]

NARRATIVE: CASE EVENT DATE: 2016
